FAERS Safety Report 12610742 (Version 1)
Quarter: 2016Q3

REPORT INFORMATION
  Report Type: Spontaneous
  Country: IT (occurrence: IT)
  Receive Date: 20160801
  Receipt Date: 20160801
  Transmission Date: 20161109
  Serious: Yes (Hospitalization)
  Sender: FDA-Public Use
  Company Number: IT-PFIZER INC-2016363960

PATIENT
  Age: 49 Year
  Sex: Male

DRUGS (3)
  1. ELETRIPTAN HBR [Suspect]
     Active Substance: ELETRIPTAN HYDROBROMIDE
     Indication: HEADACHE
     Dosage: 400 MG, MONTHLY
     Route: 048
     Dates: start: 20151201, end: 20160704
  2. PARACETAMOL [Suspect]
     Active Substance: ACETAMINOPHEN
     Indication: HEADACHE
     Dosage: 20 G, MONTHLY
     Route: 048
     Dates: start: 20151201, end: 20160704
  3. RIVOTRIL [Suspect]
     Active Substance: CLONAZEPAM
     Dosage: 60 GTT, DAILY
     Route: 048
     Dates: start: 20151201, end: 20160704

REACTIONS (3)
  - Product use issue [Recovered/Resolved]
  - Drug abuse [Recovered/Resolved]
  - Blood creatine phosphokinase increased [Recovered/Resolved]

NARRATIVE: CASE EVENT DATE: 20151201
